FAERS Safety Report 4699925-1 (Version None)
Quarter: 2005Q2

REPORT INFORMATION
  Report Type: 
  Country: None (occurrence: None)
  Receive Date: 20050623
  Receipt Date: 20050513
  Transmission Date: 20051028
  Serious: Yes (Hospitalization)
  Sender: FDA-Public Use
  Company Number: S05-SWI-02210-01

PATIENT
  Age: 44 Year
  Sex: 0

DRUGS (6)
  1. CIPRALEX (ESCITALOPRAM) [Suspect]
     Dosage: 5 MG QD PO
     Route: 048
     Dates: start: 20041014, end: 20041016
  2. CIPRALEX (ESCITALOPRAM) [Suspect]
     Dosage: 10 MG QD PO
     Route: 048
     Dates: start: 20041017, end: 20041020
  3. CIPRALEX (ESCITALOPRAM) [Suspect]
     Dosage: 20 MG QD PO
     Route: 048
     Dates: start: 20041021, end: 20041024
  4. CIPRALEX (ESCITALOPRAM) [Suspect]
     Dosage: 10 MG QD PO
     Route: 048
     Dates: start: 20041025, end: 20041026
  5. CIPRALEX (ESCITALOPRAM) [Suspect]
     Dosage: 5 MG QD PO
     Route: 048
     Dates: start: 20041027, end: 20041028
  6. DEROXATE (PAROXETINE HYDROCHLORIDE) [Concomitant]

REACTIONS (2)
  - PRURITUS [None]
  - RASH MACULO-PAPULAR [None]
